FAERS Safety Report 11339192 (Version 1)
Quarter: 2015Q3

REPORT INFORMATION
  Report Type: Spontaneous
  Country: US (occurrence: US)
  Receive Date: 20150803
  Receipt Date: 20150803
  Transmission Date: 20151125
  Serious: No
  Sender: FDA-Public Use
  Company Number: US-ELI_LILLY_AND_COMPANY-US200906004862

PATIENT
  Sex: Male

DRUGS (1)
  1. STRATTERA [Suspect]
     Active Substance: ATOMOXETINE HYDROCHLORIDE
     Dosage: 25 MG, UNKNOWN
     Route: 065

REACTIONS (4)
  - Pharyngeal oedema [Recovered/Resolved]
  - Influenza like illness [Recovered/Resolved]
  - Pigmentation disorder [Recovered/Resolved]
  - Hypersensitivity [Recovered/Resolved]
